FAERS Safety Report 7460809-7 (Version None)
Quarter: 2011Q2

REPORT INFORMATION
  Report Type: 
  Country: None (occurrence: None)
  Receive Date: 20110505
  Receipt Date: 20110503
  Transmission Date: 20111010
  Serious: Yes (Other)
  Sender: FDA-Public Use
  Company Number: US-B.I. PHARMACEUTICALS,INC./RIDGEFIELD-2011-BP-03364BP

PATIENT
  Sex: Female

DRUGS (8)
  1. METOPROLOL SUCCINATE [Concomitant]
     Indication: HYPERTENSION
  2. FUROSEMIDE [Concomitant]
  3. CATAPRES-TTS-1 [Suspect]
     Indication: HYPERTENSION
     Dosage: 0.1 MG
     Route: 061
     Dates: start: 20080301
  4. CATAPRES-TTS-1 [Suspect]
     Dosage: 0.2 MG
     Route: 061
  5. DIOVAN [Concomitant]
     Indication: HYPERTENSION
  6. CATAPRES-TTS-1 [Suspect]
     Dosage: 0.3 MG
     Route: 061
  7. KLOR-CON [Concomitant]
  8. METFORMIN HCL [Concomitant]

REACTIONS (2)
  - HYPERTENSION [None]
  - DRUG INEFFECTIVE [None]
